FAERS Safety Report 9387970 (Version 1)
Quarter: 2013Q3

REPORT INFORMATION
  Report Type: Spontaneous
  Country: FR (occurrence: FR)
  Receive Date: 20130708
  Receipt Date: 20130708
  Transmission Date: 20140515
  Serious: Yes (Hospitalization)
  Sender: FDA-Public Use
  Company Number: FR-ELI_LILLY_AND_COMPANY-FR201306008815

PATIENT
  Age: 65 Year
  Sex: Male

DRUGS (7)
  1. GEMZAR [Suspect]
     Indication: LUNG ADENOCARCINOMA STAGE IV
     Dosage: 2508 MG, OTHER
     Route: 042
     Dates: start: 20121116, end: 20130314
  2. CEFTRIAXONE [Suspect]
     Dosage: 1 G, QD
     Route: 042
     Dates: start: 20130323, end: 20130326
  3. TAZOCILLINE [Concomitant]
     Dosage: 4 G, UNK
     Dates: start: 20130329, end: 20130330
  4. AMIKLIN [Concomitant]
     Dosage: UNK
     Dates: end: 20130330
  5. PREVISCAN [Concomitant]
     Dosage: 15 MG, QD
  6. LASILIX [Concomitant]
     Dosage: 40 MG, UNK
  7. HEMIGOXINE [Concomitant]
     Dosage: 0.125 MG, UNK

REACTIONS (6)
  - Stevens-Johnson syndrome [Recovered/Resolved]
  - Cardiac failure [Unknown]
  - Atrial fibrillation [Unknown]
  - Lung disorder [Unknown]
  - Erythema [Unknown]
  - Pruritus [Unknown]
